FAERS Safety Report 11497465 (Version 3)
Quarter: 2016Q2

REPORT INFORMATION
  Report Type: Report from Study
  Country: US (occurrence: US)
  Receive Date: 20150911
  Receipt Date: 20160411
  Transmission Date: 20160815
  Serious: Yes (Other)
  Sender: FDA-Public Use
  Company Number: ADR-2015-01474

PATIENT
  Age: 57 Year
  Sex: Male

DRUGS (4)
  1. COMPOUND BACLOFEN [Suspect]
     Active Substance: BACLOFEN
     Dosage: 28.12MCG/DAY
     Route: 037
     Dates: start: 20150309
  2. MORPHINE [Suspect]
     Active Substance: MORPHINE
     Dosage: 1.125MG/DAY
     Route: 037
     Dates: start: 20150309
  3. MORPHINE [Suspect]
     Active Substance: MORPHINE
     Dosage: 2.249 MG/DAY
     Route: 037
  4. COMPOUND BACLOFEN [Suspect]
     Active Substance: BACLOFEN
     Dosage: 56.23 MCG/DAY
     Route: 037

REACTIONS (2)
  - Stitch abscess [Recovered/Resolved]
  - Somnolence [Recovered/Resolved]
